FAERS Safety Report 24720476 (Version 1)
Quarter: 2024Q4

REPORT INFORMATION
  Report Type: Spontaneous
  Country: DE (occurrence: DE)
  Receive Date: 20241211
  Receipt Date: 20241211
  Transmission Date: 20250115
  Serious: Yes (Hospitalization, Other)
  Sender: NOVARTIS
  Company Number: DE-002147023-NVSC2024DE234410

PATIENT
  Age: 54 Year
  Sex: Female

DRUGS (3)
  1. KISQALI [Suspect]
     Active Substance: RIBOCICLIB
     Indication: Breast cancer
     Dosage: 600 MG, QD (FOR 3 MONTHS)
     Route: 065
     Dates: start: 2024, end: 202411
  2. KISQALI [Suspect]
     Active Substance: RIBOCICLIB
     Dosage: 600 MG (DAILY, ALWAYS AT 8 OR 9 PM)
     Route: 065
     Dates: start: 20241204
  3. LETROZOLE [Concomitant]
     Active Substance: LETROZOLE
     Indication: Product used for unknown indication
     Dosage: 2.5 MG
     Route: 065

REACTIONS (12)
  - Paraesthesia [Unknown]
  - Dysarthria [Unknown]
  - Speech disorder [Unknown]
  - Glossitis [Unknown]
  - Stomatitis [Unknown]
  - Aphthous ulcer [Unknown]
  - Oral pain [Unknown]
  - Oral discomfort [Unknown]
  - Eating disorder [Unknown]
  - Dizziness [Unknown]
  - Nausea [Unknown]
  - Vomiting [Unknown]

NARRATIVE: CASE EVENT DATE: 20240101
